FAERS Safety Report 21758579 (Version 1)
Quarter: 2022Q4

REPORT INFORMATION
  Report Type: Spontaneous
  Country: US (occurrence: US)
  Receive Date: 20221221
  Receipt Date: 20221221
  Transmission Date: 20230113
  Serious: No
  Sender: FDA-Public Use
  Company Number: US-SA-SAC20221219001292

PATIENT
  Age: 51 Year
  Sex: Male
  Weight: 115.2 kg

DRUGS (1)
  1. DUPIXENT [Suspect]
     Active Substance: DUPILUMAB
     Dosage: 300 MG, QD
     Route: 058

REACTIONS (5)
  - Headache [Unknown]
  - Balance disorder [Unknown]
  - Vision blurred [Unknown]
  - Herpes virus infection [Unknown]
  - Inappropriate schedule of product administration [Unknown]
